FAERS Safety Report 14385721 (Version 1)
Quarter: 2018Q1

REPORT INFORMATION
  Report Type: Spontaneous
  Country: US (occurrence: US)
  Receive Date: 20180115
  Receipt Date: 20180115
  Transmission Date: 20180509
  Serious: Yes (Other)
  Sender: FDA-Public Use
  Company Number: US-SA-2017SA029541

PATIENT
  Age: 32 Year
  Sex: Female
  Weight: 70.31 kg

DRUGS (17)
  1. IBUPROFEN. [Concomitant]
     Active Substance: IBUPROFEN
     Route: 065
     Dates: start: 20130426, end: 20151103
  2. NEOSAR [Concomitant]
     Active Substance: CYCLOPHOSPHAMIDE
     Route: 065
  3. TAXOTERE [Suspect]
     Active Substance: DOCETAXEL
     Indication: BREAST CANCER FEMALE
     Route: 051
     Dates: start: 20120111, end: 20120111
  4. VITAMIN D/CALCIUM [Concomitant]
     Route: 065
     Dates: end: 20121126
  5. PRENATAL VITAMINS [Concomitant]
     Active Substance: VITAMINS
     Route: 065
  6. DENOSUMAB [Concomitant]
     Active Substance: DENOSUMAB
     Route: 058
     Dates: end: 20130405
  7. DEXAMETHASONE. [Concomitant]
     Active Substance: DEXAMETHASONE
     Route: 065
  8. DOXORUBICIN [Concomitant]
     Active Substance: DOXORUBICIN
     Route: 065
  9. NALTREXONE HYDROCHLORIDE/BUPROPION HYDROCHLORIDE [Concomitant]
     Route: 065
  10. FISH OIL [Concomitant]
     Active Substance: FISH OIL
     Route: 065
  11. SENNA [Concomitant]
     Active Substance: SENNA LEAF\SENNOSIDES\SENNOSIDES A AND B
     Route: 048
     Dates: end: 20120720
  12. IBUPROFEN. [Concomitant]
     Active Substance: IBUPROFEN
     Dosage: EVERY 6 HR AS NEEDED
     Route: 048
     Dates: end: 20130220
  13. VINORELBINE [Concomitant]
     Active Substance: VINORELBINE\VINORELBINE TARTRATE
     Route: 065
  14. TAXOTERE [Suspect]
     Active Substance: DOCETAXEL
     Indication: BREAST CANCER FEMALE
     Route: 051
     Dates: start: 20111109, end: 20111109
  15. VITAMIN D/CALCIUM [Concomitant]
     Route: 048
     Dates: start: 20120504, end: 20130220
  16. VITAMIN E [Concomitant]
     Active Substance: .ALPHA.-TOCOPHEROL
     Route: 065
  17. VITAMIN E [Concomitant]
     Active Substance: .ALPHA.-TOCOPHEROL
     Route: 065

REACTIONS (10)
  - Impaired work ability [Unknown]
  - Alopecia [Not Recovered/Not Resolved]
  - Anxiety [Unknown]
  - Impaired quality of life [Unknown]
  - Injury [Unknown]
  - Hair texture abnormal [Unknown]
  - Psychological trauma [Unknown]
  - Pain [Unknown]
  - Emotional distress [Unknown]
  - Hair colour changes [Unknown]

NARRATIVE: CASE EVENT DATE: 201207
